FAERS Safety Report 4998047-X (Version None)
Quarter: 2006Q2

REPORT INFORMATION
  Report Type: 
  Country: None (occurrence: None)
  Receive Date: 20060510
  Receipt Date: 20060503
  Transmission Date: 20061013
  Serious: Yes (Other)
  Sender: FDA-Public Use
  Company Number: GB-JNJFOC-20060501117

PATIENT
  Age: 38 Year
  Sex: Female

DRUGS (12)
  1. TRAMADOL HCL [Suspect]
     Indication: DRUG USE FOR UNKNOWN INDICATION
     Route: 065
  2. BUPRENORPHINE HCL [Suspect]
     Indication: PAIN
     Route: 062
  3. RANITIDINE [Concomitant]
     Route: 065
  4. ARTHROTEC [Concomitant]
     Route: 065
  5. ARTHROTEC [Concomitant]
     Route: 065
  6. ZOLPIDEM TARTRATE [Concomitant]
     Route: 065
  7. GABAPENTIN [Concomitant]
     Route: 065
  8. GAMOLENIC ACID [Concomitant]
     Route: 065
  9. SOLPADOL [Concomitant]
     Route: 065
  10. SOLPADOL [Concomitant]
     Route: 065
  11. BACLOFEN [Concomitant]
     Route: 065
  12. DIAZEPAM [Concomitant]
     Route: 065

REACTIONS (3)
  - OVERDOSE [None]
  - PERIPHERAL COLDNESS [None]
  - RESPIRATORY DEPRESSION [None]
